FAERS Safety Report 6549577-0 (Version None)
Quarter: 2010Q1

REPORT INFORMATION
  Report Type: 
  Country: None (occurrence: None)
  Receive Date: 20100125
  Receipt Date: 20100120
  Transmission Date: 20100710
  Serious: Yes (Life-Threatening, Hospitalization)
  Sender: FDA-Public Use
  Company Number: JP-EISAI INC.-E2020-05890-SPO-JP

PATIENT
  Age: 82 Year
  Sex: Female

DRUGS (7)
  1. ARICEPT [Suspect]
     Indication: DEMENTIA ALZHEIMER'S TYPE
     Route: 048
     Dates: start: 20050101, end: 20071201
  2. ARICEPT [Suspect]
     Route: 048
     Dates: start: 20071201, end: 20100119
  3. ACTONEL [Concomitant]
     Route: 048
  4. NEUROTROPIN [Concomitant]
  5. MUCOSTA [Concomitant]
     Route: 048
  6. ONEALFA [Concomitant]
     Route: 048
  7. HYPEN [Concomitant]
     Route: 048

REACTIONS (1)
  - DUODENAL PERFORATION [None]
